FAERS Safety Report 21980376 (Version 1)
Quarter: 2023Q1

REPORT INFORMATION
  Report Type: Report from Study
  Country: JP (occurrence: JP)
  Receive Date: 20230211
  Receipt Date: 20230211
  Transmission Date: 20230418
  Serious: Yes (Hospitalization, Other)
  Sender: FDA-Public Use
  Company Number: JP-JNJFOC-A-CH2016-145621

PATIENT
  Age: 50 Year
  Sex: Female

DRUGS (109)
  1. OPSUMIT [Interacting]
     Active Substance: MACITENTAN
     Indication: Pulmonary arterial hypertension
     Dosage: 10 MG, QD
     Route: 048
     Dates: start: 20150929
  2. EPOPROSTENOL [Suspect]
     Active Substance: EPOPROSTENOL
     Indication: Pulmonary arterial hypertension
     Dosage: 0.214-25NG/KG/MIN(GRADUALLY INCREASED)
     Route: 042
     Dates: start: 20151005, end: 20151221
  3. EPOPROSTENOL [Suspect]
     Active Substance: EPOPROSTENOL
     Dosage: 27 NG/KG, PER MIN
     Route: 042
  4. EPOPROSTENOL [Suspect]
     Active Substance: EPOPROSTENOL
     Dosage: 11.4 NG/KG, PER MIN
     Route: 042
     Dates: start: 20151105
  5. EPOPROSTENOL [Suspect]
     Active Substance: EPOPROSTENOL
     Dosage: 25.5 NG/KG, PER MIN
     Route: 042
     Dates: start: 20151208
  6. EPOPROSTENOL [Suspect]
     Active Substance: EPOPROSTENOL
     Dosage: 29.5 NG/KG, PER MIN
     Route: 042
     Dates: start: 20160105
  7. EPOPROSTENOL [Suspect]
     Active Substance: EPOPROSTENOL
     Dosage: 34.0 NG/KG, PER MIN
     Route: 042
     Dates: start: 20160205
  8. EPOPROSTENOL [Suspect]
     Active Substance: EPOPROSTENOL
     Dosage: 38.0 NG/KG, PER MIN
     Route: 042
     Dates: start: 20160305
  9. EPOPROSTENOL [Suspect]
     Active Substance: EPOPROSTENOL
     Dosage: 42.5 NG/KG, PER MIN
     Route: 042
     Dates: start: 20160405
  10. EPOPROSTENOL [Suspect]
     Active Substance: EPOPROSTENOL
     Dosage: 46.5 NG/KG, PER MIN
     Route: 042
     Dates: start: 20160505
  11. EPOPROSTENOL [Suspect]
     Active Substance: EPOPROSTENOL
     Dosage: 51.0 NG/KG, PER MIN
     Route: 042
     Dates: start: 20160605
  12. EPOPROSTENOL [Suspect]
     Active Substance: EPOPROSTENOL
     Dosage: 55.5 NG/KG, PER MIN
     Route: 042
     Dates: start: 20160705
  13. EPOPROSTENOL [Suspect]
     Active Substance: EPOPROSTENOL
     Dosage: 60 NG/KG, PER MIN
     Route: 042
     Dates: start: 20160805
  14. EPOPROSTENOL [Suspect]
     Active Substance: EPOPROSTENOL
     Dosage: 64 NG/KG, PER MIN
     Route: 042
     Dates: start: 20160905
  15. EPOPROSTENOL [Suspect]
     Active Substance: EPOPROSTENOL
     Dosage: 68.5 NG/KG, PER MIN
     Route: 042
     Dates: start: 20161005
  16. EPOPROSTENOL [Suspect]
     Active Substance: EPOPROSTENOL
     Dosage: 0.427 NG/KG, PER MIN
     Route: 042
     Dates: start: 20151006
  17. EPOPROSTENOL [Suspect]
     Active Substance: EPOPROSTENOL
     Dosage: 0.427 NG/KG, PER MIN
     Route: 042
     Dates: start: 20151007
  18. EPOPROSTENOL [Suspect]
     Active Substance: EPOPROSTENOL
     Dosage: 1.259 NG/KG, PER MIN
     Route: 042
     Dates: start: 20151010
  19. EPOPROSTENOL [Suspect]
     Active Substance: EPOPROSTENOL
     Dosage: 1.498 NG/KG, PER MIN
     Route: 042
     Dates: start: 20151011
  20. EPOPROSTENOL [Suspect]
     Active Substance: EPOPROSTENOL
     Dosage: 2.354 NG/KG, PER MIN
     Route: 042
     Dates: start: 20151015
  21. EPOPROSTENOL [Suspect]
     Active Substance: EPOPROSTENOL
     Dosage: 37.5 NG/KG, PER MIN
     Route: 042
     Dates: start: 20160301
  22. EPOPROSTENOL [Suspect]
     Active Substance: EPOPROSTENOL
     Dosage: 59.5 NG/KG, PER MIN
     Route: 042
     Dates: start: 20160803
  23. EPOPROSTENOL [Suspect]
     Active Substance: EPOPROSTENOL
     Dosage: 69.5 NG/KG, PER MIN
     Route: 042
  24. EPOPROSTENOL [Suspect]
     Active Substance: EPOPROSTENOL
     Dosage: 73 NG/KG, PER MIN
     Route: 042
     Dates: start: 20161105
  25. EPOPROSTENOL [Suspect]
     Active Substance: EPOPROSTENOL
     Dosage: 74 NG/KG, PER MIN
     Route: 042
     Dates: start: 20161205
  26. EPOPROSTENOL [Suspect]
     Active Substance: EPOPROSTENOL
     Dosage: 53.5 NG/KG, PER MIN
     Route: 042
  27. EPOPROSTENOL [Suspect]
     Active Substance: EPOPROSTENOL
     Dosage: 25-69.5NG/KG/MIN
     Route: 042
     Dates: start: 20151222, end: 2016
  28. EPOPROSTENOL [Suspect]
     Active Substance: EPOPROSTENOL
     Dosage: 69.5-75NG/KG/MIN
     Route: 042
     Dates: start: 2016, end: 2016
  29. EPOPROSTENOL [Suspect]
     Active Substance: EPOPROSTENOL
     Dosage: 75-53.5NG/KG/MIN (GRADUALLY DECREASED)
     Route: 042
     Dates: start: 201612, end: 2016
  30. EPOPROSTENOL [Suspect]
     Active Substance: EPOPROSTENOL
     Dosage: 43.5-33NG/KG/MIN
     Route: 042
     Dates: start: 201812, end: 201901
  31. EPOPROSTENOL [Suspect]
     Active Substance: EPOPROSTENOL
     Dosage: DOSE UNKNOWN, GRADUALLY DECREASED
     Route: 042
     Dates: start: 201901, end: 202001
  32. EPOPROSTENOL [Suspect]
     Active Substance: EPOPROSTENOL
     Dosage: 19NG/KG/MIN
     Route: 042
     Dates: start: 202001, end: 20200501
  33. ADEMPAS [Interacting]
     Active Substance: RIOCIGUAT
     Indication: Pulmonary arterial hypertension
     Dosage: 10 MG, TID
     Route: 048
     Dates: start: 20151001, end: 20151002
  34. ADEMPAS [Interacting]
     Active Substance: RIOCIGUAT
     Route: 048
     Dates: start: 201911
  35. ADEMPAS [Interacting]
     Active Substance: RIOCIGUAT
     Dosage: DOSE UNKNOWN,GRADUALLY INCREASED
     Route: 048
     Dates: start: 2020, end: 2020
  36. ADEMPAS [Interacting]
     Active Substance: RIOCIGUAT
     Route: 048
     Dates: start: 2020
  37. SENNOSIDES A AND B [Suspect]
     Active Substance: SENNOSIDES A AND B
     Indication: Constipation
     Dosage: UNK, PRN
     Route: 048
     Dates: start: 20151007, end: 20151009
  38. CEFAZOLIN SODIUM [Suspect]
     Active Substance: CEFAZOLIN SODIUM
     Indication: Infection prophylaxis
     Dosage: 1 G, QD
     Route: 042
     Dates: start: 20151002, end: 20151002
  39. CEFAZOLIN SODIUM [Suspect]
     Active Substance: CEFAZOLIN SODIUM
     Dosage: 3 G, QD
     Route: 042
     Dates: start: 20151003, end: 20151007
  40. CEFAZOLIN SODIUM [Suspect]
     Active Substance: CEFAZOLIN SODIUM
     Dosage: 1 G, QD
     Route: 042
     Dates: start: 20151008, end: 20151008
  41. CEFAZOLIN SODIUM [Suspect]
     Active Substance: CEFAZOLIN SODIUM
     Dosage: 1 G, QD
     Route: 042
     Dates: start: 20151016, end: 20151016
  42. CEFAZOLIN SODIUM [Suspect]
     Active Substance: CEFAZOLIN SODIUM
     Dosage: 2 G, QD2 G, QD
     Route: 042
     Dates: start: 20151021, end: 20151023
  43. CEFAZOLIN SODIUM [Suspect]
     Active Substance: CEFAZOLIN SODIUM
     Route: 042
     Dates: start: 20151003, end: 20151007
  44. CALONAL [Concomitant]
     Active Substance: ACETAMINOPHEN
     Indication: Temporomandibular joint syndrome
     Route: 048
     Dates: start: 20151105, end: 20151105
  45. CALONAL [Concomitant]
     Active Substance: ACETAMINOPHEN
     Indication: Arthralgia
     Route: 048
     Dates: start: 20150918, end: 20151002
  46. CALONAL [Concomitant]
     Active Substance: ACETAMINOPHEN
     Indication: Headache
     Route: 048
     Dates: start: 20150918, end: 20151002
  47. CALONAL [Concomitant]
     Active Substance: ACETAMINOPHEN
     Route: 048
     Dates: start: 20151005, end: 20151016
  48. CALONAL [Concomitant]
     Active Substance: ACETAMINOPHEN
     Route: 048
     Dates: start: 20160609, end: 20160817
  49. LASIX [Concomitant]
     Active Substance: FUROSEMIDE
     Indication: Right ventricular failure
     Route: 048
     Dates: start: 20150925, end: 20151002
  50. LASIX [Concomitant]
     Active Substance: FUROSEMIDE
     Indication: Circulatory collapse
     Route: 042
     Dates: start: 20151002, end: 20151002
  51. LASIX [Concomitant]
     Active Substance: FUROSEMIDE
     Route: 042
     Dates: start: 20151003, end: 20151003
  52. LASIX [Concomitant]
     Active Substance: FUROSEMIDE
     Route: 042
     Dates: start: 20151004, end: 20151004
  53. LASIX [Concomitant]
     Active Substance: FUROSEMIDE
     Route: 042
     Dates: start: 20151005, end: 20151006
  54. WARFARIN POTASSIUM [Concomitant]
     Active Substance: WARFARIN POTASSIUM
     Indication: Pulmonary arterial hypertension
     Route: 048
     Dates: start: 20150930, end: 20151001
  55. NEXIUM [Concomitant]
     Active Substance: ESOMEPRAZOLE MAGNESIUM
     Indication: Gastritis prophylaxis
     Route: 048
     Dates: start: 20151007
  56. NEXIUM [Concomitant]
     Active Substance: ESOMEPRAZOLE MAGNESIUM
     Route: 048
  57. DOBUTAMINE HYDROCHLORIDE [Concomitant]
     Active Substance: DOBUTAMINE HYDROCHLORIDE
     Indication: Right ventricular failure
     Route: 042
     Dates: start: 20150928
  58. DOBUTAMINE HYDROCHLORIDE [Concomitant]
     Active Substance: DOBUTAMINE HYDROCHLORIDE
     Indication: Circulatory collapse
     Route: 042
     Dates: start: 20150929, end: 20150930
  59. DOBUTAMINE HYDROCHLORIDE [Concomitant]
     Active Substance: DOBUTAMINE HYDROCHLORIDE
     Route: 042
     Dates: start: 20151001, end: 20151001
  60. DOBUTAMINE HYDROCHLORIDE [Concomitant]
     Active Substance: DOBUTAMINE HYDROCHLORIDE
     Dosage: 2 IN 1 DAY
     Route: 042
     Dates: start: 20151002, end: 20151002
  61. DOBUTAMINE HYDROCHLORIDE [Concomitant]
     Active Substance: DOBUTAMINE HYDROCHLORIDE
     Dosage: 2 IN 1 DAY
     Route: 042
     Dates: start: 20151007, end: 20151007
  62. DOBUTAMINE HYDROCHLORIDE [Concomitant]
     Active Substance: DOBUTAMINE HYDROCHLORIDE
     Dosage: 2 IN 1 DAY
     Route: 042
     Dates: start: 20151008, end: 20151016
  63. OMEPRAZOLE SODIUM [Concomitant]
     Active Substance: OMEPRAZOLE SODIUM
     Indication: Gastritis prophylaxis
     Route: 042
     Dates: start: 20151002, end: 20151002
  64. OMEPRAZOLE SODIUM [Concomitant]
     Active Substance: OMEPRAZOLE SODIUM
     Route: 042
     Dates: start: 20151003, end: 20151006
  65. OMEPRAZOLE SODIUM [Concomitant]
     Active Substance: OMEPRAZOLE SODIUM
     Route: 042
     Dates: start: 20151007, end: 20151008
  66. PROPOFOL [Concomitant]
     Active Substance: PROPOFOL
     Indication: Sedation
     Route: 065
     Dates: start: 20151002, end: 20151002
  67. PROPOFOL [Concomitant]
     Active Substance: PROPOFOL
     Route: 065
     Dates: start: 20151003, end: 20151003
  68. PROPOFOL [Concomitant]
     Active Substance: PROPOFOL
     Route: 065
     Dates: start: 20151005, end: 20151005
  69. FENTANYL CITRATE [Concomitant]
     Active Substance: FENTANYL CITRATE
     Indication: Sedation
     Route: 042
     Dates: start: 20151004, end: 20151004
  70. FENTANYL CITRATE [Concomitant]
     Active Substance: FENTANYL CITRATE
     Route: 042
     Dates: start: 20151005, end: 20151005
  71. HEPARIN SODIUM [Concomitant]
     Active Substance: HEPARIN SODIUM
     Indication: Fibrin degradation products increased
     Dosage: 2 IN 1 DAYS
     Route: 042
     Dates: start: 20151003, end: 20151003
  72. HEPARIN SODIUM [Concomitant]
     Active Substance: HEPARIN SODIUM
     Indication: Circulatory collapse
     Route: 042
     Dates: start: 20151002, end: 20151002
  73. HEPARIN SODIUM [Concomitant]
     Active Substance: HEPARIN SODIUM
     Indication: Thrombosis prophylaxis
     Route: 042
     Dates: start: 20151002, end: 20151002
  74. HEPARIN SODIUM [Concomitant]
     Active Substance: HEPARIN SODIUM
     Route: 042
     Dates: start: 20151004, end: 20151007
  75. HEPARIN SODIUM [Concomitant]
     Active Substance: HEPARIN SODIUM
     Route: 042
     Dates: start: 20151009, end: 20151019
  76. HEPARIN SODIUM [Concomitant]
     Active Substance: HEPARIN SODIUM
     Route: 042
     Dates: start: 20151020, end: 20151020
  77. ATARAX-P [HYDROXYZINE HYDROCHLORIDE] [Concomitant]
     Indication: Analgesic therapy
     Route: 042
     Dates: start: 20151130, end: 20151130
  78. OXYGEN [Concomitant]
     Active Substance: OXYGEN
     Indication: Product used for unknown indication
     Dosage: DOSE UNKNOWN
     Route: 055
  79. MAGLAX [MAGNESIUM OXIDE] [Concomitant]
     Indication: Constipation
     Route: 048
     Dates: start: 20151009, end: 20151014
  80. INOVAN [DOPAMINE HYDROCHLORIDE] [Concomitant]
     Indication: Circulatory collapse
     Route: 042
     Dates: start: 20151002, end: 20151002
  81. INOVAN [DOPAMINE HYDROCHLORIDE] [Concomitant]
     Route: 042
     Dates: start: 20151005, end: 20151005
  82. INOVAN [DOPAMINE HYDROCHLORIDE] [Concomitant]
     Route: 042
     Dates: start: 20151006, end: 20151007
  83. INOVAN [DOPAMINE HYDROCHLORIDE] [Concomitant]
     Route: 042
     Dates: start: 20151008, end: 20151010
  84. INOVAN [DOPAMINE HYDROCHLORIDE] [Concomitant]
     Route: 042
     Dates: start: 20151012, end: 20151013
  85. INOVAN [DOPAMINE HYDROCHLORIDE] [Concomitant]
     Route: 042
     Dates: start: 20151015, end: 20151015
  86. HAPTOGLOBIN [Concomitant]
     Indication: Circulatory collapse
     Route: 042
     Dates: start: 20151002, end: 20151002
  87. PLATELETS [Concomitant]
     Active Substance: HUMAN PLATELET, ALLOGENIC
     Indication: Circulatory collapse
     Route: 042
     Dates: start: 20151002, end: 20151003
  88. HUMAN RED BLOOD CELL [Concomitant]
     Active Substance: HUMAN RED BLOOD CELL
     Indication: Circulatory collapse
     Route: 042
     Dates: start: 20151002, end: 20151002
  89. PRIMPERAN [Concomitant]
     Active Substance: METOCLOPRAMIDE HYDROCHLORIDE
     Indication: Pseudomembranous colitis
     Route: 042
     Dates: start: 20151129, end: 20151202
  90. CAMPHOR\MENTHOL\METHYL SALICYLATE [Concomitant]
     Active Substance: CAMPHOR\MENTHOL\METHYL SALICYLATE
     Indication: Back pain
     Route: 062
     Dates: start: 20151005, end: 20151006
  91. BIFIDOBACTERIUM SPP. [Concomitant]
     Active Substance: BIFIDOBACTERIUM SPP.
     Indication: Prophylaxis
     Route: 048
     Dates: start: 20170223
  92. TREPROSTINIL [Concomitant]
     Active Substance: TREPROSTINIL
     Indication: Pulmonary arterial hypertension
     Dosage: 20NG/KG/MIN
     Route: 065
     Dates: start: 202005, end: 202204
  93. TREPROSTINIL [Concomitant]
     Active Substance: TREPROSTINIL
     Dosage: DOSE UNKNOWN,GRADUALLY INCREASED
     Route: 065
     Dates: start: 202204, end: 2022
  94. TREPROSTINIL [Concomitant]
     Active Substance: TREPROSTINIL
     Dosage: 50NG/KG/MIN
     Route: 065
     Dates: start: 2022, end: 2022
  95. TREPROSTINIL [Concomitant]
     Active Substance: TREPROSTINIL
     Dosage: DOSE UNKNOWN,GRADUALLY INCREASED
     Route: 065
     Dates: start: 2022, end: 2022
  96. TREPROSTINIL [Concomitant]
     Active Substance: TREPROSTINIL
     Dosage: 84NG/KG/MIN
     Route: 065
     Dates: start: 2022
  97. SELEXIPAG [Concomitant]
     Active Substance: SELEXIPAG
     Indication: Pulmonary arterial hypertension
     Dosage: DOSE UNKNOWN
     Route: 048
     Dates: start: 202105, end: 2021
  98. SELEXIPAG [Concomitant]
     Active Substance: SELEXIPAG
     Dosage: DOSE UNKNOWN,GRADUALLY INCREASED
     Route: 048
     Dates: start: 2021, end: 2021
  99. SELEXIPAG [Concomitant]
     Active Substance: SELEXIPAG
     Route: 048
     Dates: start: 2021
  100. SELEXIPAG [Concomitant]
     Active Substance: SELEXIPAG
     Route: 048
     Dates: start: 202104
  101. AZOSEMIDE [Concomitant]
     Active Substance: AZOSEMIDE
     Route: 048
  102. SODIUM CITRATE [Concomitant]
     Active Substance: SODIUM CITRATE
     Route: 048
  103. POTASSIUM ASPARTATE [Concomitant]
     Active Substance: POTASSIUM ASPARTATE
     Route: 048
  104. CARBOCYSTEINE [Concomitant]
     Active Substance: CARBOCYSTEINE
     Route: 048
  105. CALCIUM POLYCARBOPHIL [Concomitant]
     Active Substance: CALCIUM POLYCARBOPHIL
     Route: 048
  106. BIFIDOBACTERIUM BIFIDUM [Concomitant]
     Active Substance: BIFIDOBACTERIUM BIFIDUM
     Route: 048
  107. SPIRONOLACTONE [Concomitant]
     Active Substance: SPIRONOLACTONE
     Route: 048
     Dates: start: 2022
  108. TOLVAPTAN [Concomitant]
     Active Substance: TOLVAPTAN
     Route: 065
     Dates: start: 2022
  109. CEFACLOR [Concomitant]
     Active Substance: CEFACLOR

REACTIONS (43)
  - Circulatory collapse [Recovering/Resolving]
  - Dizziness postural [Recovering/Resolving]
  - Chest pain [Recovered/Resolved]
  - PO2 decreased [Recovering/Resolving]
  - PCO2 decreased [Recovering/Resolving]
  - Blood pressure decreased [Recovering/Resolving]
  - Lung assist device therapy [Unknown]
  - Intra-aortic balloon placement [Unknown]
  - Catheter site infection [Recovered/Resolved]
  - Pseudomonas infection [Recovered/Resolved]
  - Catheter site erythema [Recovered/Resolved]
  - Transfusion [Unknown]
  - Headache [Recovering/Resolving]
  - Hypokalaemia [Recovered/Resolved]
  - Blood potassium decreased [Recovered/Resolved]
  - Constipation [Recovered/Resolved]
  - Pruritus [Recovering/Resolving]
  - Back pain [Recovered/Resolved]
  - Abdominal pain [Recovered/Resolved with Sequelae]
  - Cough [Recovered/Resolved with Sequelae]
  - Vasculitis [Recovering/Resolving]
  - Fibrin degradation products increased [Recovered/Resolved]
  - Temporomandibular joint syndrome [Recovered/Resolved]
  - Faeces soft [Recovering/Resolving]
  - Pseudomembranous colitis [Recovered/Resolved]
  - Nausea [Recovered/Resolved]
  - Vomiting [Recovered/Resolved]
  - Insomnia [Recovered/Resolved]
  - Erythema [Recovering/Resolving]
  - Pain in extremity [Recovering/Resolving]
  - Arthralgia [Recovered/Resolved]
  - Diarrhoea [Recovering/Resolving]
  - Catheter site dermatitis [Recovered/Resolved]
  - Drug interaction [Unknown]
  - Decreased appetite [Recovered/Resolved]
  - Dermatitis contact [Recovered/Resolved]
  - White blood cell count decreased [Recovered/Resolved]
  - Catheter site eczema [Recovered/Resolved]
  - Catheter site eczema [Recovered/Resolved]
  - Nasopharyngitis [Recovered/Resolved]
  - Rhinorrhoea [Recovered/Resolved]
  - Catheter site infection [Recovered/Resolved]
  - Thyroiditis [Unknown]

NARRATIVE: CASE EVENT DATE: 20151001
